FAERS Safety Report 14467204 (Version 1)
Quarter: 2018Q1

REPORT INFORMATION
  Report Type: Spontaneous
  Country: US (occurrence: US)
  Receive Date: 20180131
  Receipt Date: 20180131
  Transmission Date: 20180509
  Serious: Yes (Other)
  Sender: FDA-Public Use
  Company Number: PHEH2018US002858

PATIENT
  Sex: Male

DRUGS (1)
  1. ARRANON [Suspect]
     Active Substance: NELARABINE
     Indication: PRODUCT USED FOR UNKNOWN INDICATION
     Dosage: 2750 MG, UNK(11 VIALS)
     Route: 065

REACTIONS (3)
  - Septic shock [Unknown]
  - General physical health deterioration [Unknown]
  - Pyrexia [Unknown]
